FAERS Safety Report 12894246 (Version 2)
Quarter: 2020Q4

REPORT INFORMATION
  Report Type: Report from Study
  Country: JP (occurrence: JP)
  Receive Date: 20161028
  Receipt Date: 20201119
  Transmission Date: 20210113
  Serious: Yes (Other)
  Sender: FDA-Public Use
  Company Number: JP-ELI_LILLY_AND_COMPANY-JP201610008256

PATIENT
  Age: 69 Year
  Sex: Male

DRUGS (1)
  1. CETUXIMAB. [Suspect]
     Active Substance: CETUXIMAB
     Indication: SQUAMOUS CELL CARCINOMA OF HEAD AND NECK
     Dosage: UNK UNK, UNKNOWN
     Route: 041
     Dates: start: 20160113, end: 20160224

REACTIONS (12)
  - Pharyngeal inflammation [Recovered/Resolved]
  - Pyrexia [Recovered/Resolved]
  - Radiation skin injury [Recovered/Resolved]
  - Dry mouth [Recovering/Resolving]
  - Stomatitis [Recovered/Resolved]
  - Dysgeusia [Not Recovered/Not Resolved]
  - Paronychia [Recovered/Resolved]
  - Aspartate aminotransferase increased [Recovering/Resolving]
  - Hypomagnesaemia [Recovered/Resolved]
  - Aspiration [Recovered/Resolved]
  - Rash maculo-papular [Recovering/Resolving]
  - Alanine aminotransferase increased [Recovered/Resolved]

NARRATIVE: CASE EVENT DATE: 20160115
